FAERS Safety Report 14536647 (Version 1)
Quarter: 2018Q1

REPORT INFORMATION
  Report Type: Spontaneous
  Country: US (occurrence: US)
  Receive Date: 20180215
  Receipt Date: 20180215
  Transmission Date: 20180509
  Serious: Yes (Hospitalization)
  Sender: FDA-Public Use
  Company Number: None

PATIENT
  Age: 73 Year
  Sex: Female
  Weight: 76.9 kg

DRUGS (9)
  1. CARDURA [Concomitant]
     Active Substance: DOXAZOSIN MESYLATE
  2. CARDIZEM CD [Concomitant]
     Active Substance: DILTIAZEM HYDROCHLORIDE
  3. LEXAPRO [Concomitant]
     Active Substance: ESCITALOPRAM OXALATE
  4. PRAVACHOL [Concomitant]
     Active Substance: PRAVASTATIN SODIUM
  5. TENEX [Concomitant]
     Active Substance: GUANFACINE HYDROCHLORIDE
  6. ATIVAN [Concomitant]
     Active Substance: LORAZEPAM
  7. ELIQUIS [Suspect]
     Active Substance: APIXABAN
     Indication: ATRIAL FIBRILLATION
     Route: 048
  8. VITD [Concomitant]
  9. ROGAINE [Concomitant]
     Active Substance: MINOXIDIL

REACTIONS (8)
  - Lower gastrointestinal haemorrhage [None]
  - Haemorrhagic anaemia [None]
  - Hallucination, visual [None]
  - Hypotension [None]
  - Agitation [None]
  - Therapy cessation [None]
  - Tachycardia [None]
  - Hypovolaemic shock [None]

NARRATIVE: CASE EVENT DATE: 20170623
